FAERS Safety Report 18600289 (Version 1)
Quarter: 2020Q4

REPORT INFORMATION
  Report Type: Spontaneous
  Country: US (occurrence: US)
  Receive Date: 20201210
  Receipt Date: 20201210
  Transmission Date: 20210114
  Serious: Yes (Hospitalization)
  Sender: FDA-Public Use
  Company Number: None

PATIENT
  Age: 69 Year
  Sex: Male
  Weight: 50 kg

DRUGS (6)
  1. CALCIUM 600 + D [Concomitant]
     Active Substance: CALCIUM\VITAMIN D
  2. ABIRATERONE. [Suspect]
     Active Substance: ABIRATERONE ACETATE
     Indication: PROSTATE CANCER
     Route: 048
     Dates: start: 20201110, end: 20201129
  3. ASPIR-LOW [Concomitant]
     Active Substance: ASPIRIN
  4. LISINOPRIL. [Concomitant]
     Active Substance: LISINOPRIL
  5. PREDNISONE. [Concomitant]
     Active Substance: PREDNISONE
  6. ATORVASTATIN CALCIUM. [Concomitant]
     Active Substance: ATORVASTATIN CALCIUM

REACTIONS (2)
  - Therapy interrupted [None]
  - Cystitis [None]

NARRATIVE: CASE EVENT DATE: 20201129
